FAERS Safety Report 5279577-2 (Version None)
Quarter: 2007Q1

REPORT INFORMATION
  Report Type: 
  Country: None (occurrence: None)
  Receive Date: 20070323
  Receipt Date: 20070312
  Transmission Date: 20070707
  Serious: Yes (Hospitalization)
  Sender: FDA-Public Use
  Company Number: 237563

PATIENT
  Age: 68 Year
  Sex: Male
  Weight: 72.9 kg

DRUGS (11)
  1. BEVACIZUMAB(BEVACIZUMAB) PWDR + SOLVENT,INFUSION SOLN, 100MG [Suspect]
     Indication: NON-SMALL CELL LUNG CANCER
     Dosage: 1260, Q3W, INTRAVENOUS
     Route: 042
     Dates: start: 20060329
  2. DOCETAXEL (DOCETAXEL) [Suspect]
     Indication: NON-SMALL CELL LUNG CANCER
     Dosage: 135 MG, Q3W, INTRAVENOUS
     Route: 042
  3. LOVASTATIN [Concomitant]
  4. ATENOLOL [Concomitant]
  5. CARBOPLATIN [Suspect]
     Indication: NON-SMALL CELL LUNG CANCER
     Dosage: 460 MG, Q3W, INTRAVENOUS
     Route: 042
     Dates: start: 20060308
  6. LISINOPRIL [Concomitant]
  7. ASPIRIN [Concomitant]
  8. LANTUS [Concomitant]
  9. HUMALOG [Concomitant]
  10. WARFARIN SODIUM [Concomitant]
  11. DEXAMETHASONE TAB [Concomitant]

REACTIONS (6)
  - BRAIN SCAN ABNORMAL [None]
  - CEREBRAL ARTERIOSCLEROSIS [None]
  - CONDITION AGGRAVATED [None]
  - DEPRESSED LEVEL OF CONSCIOUSNESS [None]
  - FALL [None]
  - LEUKOENCEPHALOPATHY [None]
